FAERS Safety Report 7273633-5 (Version None)
Quarter: 2010Q4

REPORT INFORMATION
  Report Type: 
  Country: None (occurrence: None)
  Receive Date: 20101130
  Receipt Date: 20100212
  Transmission Date: 20110411
  Serious: Yes (Hospitalization)
  Sender: FDA-Public Use
  Company Number: 2010SP009187

PATIENT
  Age: 22 Year
  Sex: Female
  Weight: 108.8633 kg

DRUGS (6)
  1. NUVARING [Suspect]
     Indication: CONTRACEPTION
     Dosage: 1 DF;Q3W;VAG
     Route: 067
     Dates: start: 20080715, end: 20090701
  2. GAVISCON [Concomitant]
  3. KETOROLAC [Concomitant]
  4. AZITHROMYCIN [Concomitant]
  5. FLUCONAZOLE [Concomitant]
  6. CLOBETASOL PROPIONATE [Concomitant]

REACTIONS (15)
  - ANXIETY [None]
  - CEREBRAL HAEMORRHAGE [None]
  - CEREBRAL THROMBOSIS [None]
  - CHLAMYDIAL INFECTION [None]
  - DEPRESSION [None]
  - MIGRAINE [None]
  - MUSCLE TIGHTNESS [None]
  - PATELLOFEMORAL PAIN SYNDROME [None]
  - PHARYNGITIS STREPTOCOCCAL [None]
  - RHINITIS [None]
  - SYSTOLIC HYPERTENSION [None]
  - URINARY TRACT INFECTION [None]
  - VIRAL UPPER RESPIRATORY TRACT INFECTION [None]
  - VULVOVAGINAL MYCOTIC INFECTION [None]
  - VULVOVAGINITIS [None]
